FAERS Safety Report 4757544-2 (Version None)
Quarter: 2005Q3

REPORT INFORMATION
  Report Type: 
  Country: None (occurrence: None)
  Receive Date: 20050829
  Receipt Date: 20050818
  Transmission Date: 20060218
  Serious: Yes (Hospitalization)
  Sender: FDA-Public Use
  Company Number: ZICO001276

PATIENT
  Sex: Female

DRUGS (3)
  1. PRIALT [Suspect]
     Dosage: 0.02 MCG/HR INTRATHECAL
     Route: 037
     Dates: start: 20050809
  2. CLONIDINE [Suspect]
     Dosage: 25-30 MCG QD INTRATHECAL
     Route: 037
  3. DILAUDID [Concomitant]

REACTIONS (8)
  - DEHYDRATION [None]
  - DIZZINESS [None]
  - FALL [None]
  - HYPOTENSION [None]
  - HYPOVOLAEMIA [None]
  - LOSS OF CONSCIOUSNESS [None]
  - PAIN [None]
  - URINARY TRACT INFECTION [None]
